FAERS Safety Report 5316563-8 (Version None)
Quarter: 2007Q2

REPORT INFORMATION
  Report Type: 
  Country: None (occurrence: None)
  Receive Date: 20070504
  Receipt Date: 20070426
  Transmission Date: 20071010
  Serious: Yes (Hospitalization)
  Sender: FDA-Public Use
  Company Number: ZA-AVENTIS-200712074EU

PATIENT
  Age: 63 Year
  Sex: Male
  Weight: 76 kg

DRUGS (5)
  1. ENOXAPARIN SODIUM [Suspect]
     Route: 058
  2. CODE UNBROKEN [Suspect]
     Dosage: DOSE: 3 MG OF 1/WEEK SC SSR126517 + PLACEBO WARFARIN VERSUS PLACEBO SSR126517 + ORAL INR-ADJUSTED WA
  3. ECOTRIN [Concomitant]
  4. CONCOR                             /00802602/ [Concomitant]
  5. AUGMENTIN                          /00756801/ [Concomitant]

REACTIONS (1)
  - PERIPHERAL ISCHAEMIA [None]
